FAERS Safety Report 9382038 (Version 2)
Quarter: 2013Q3

REPORT INFORMATION
  Report Type: Spontaneous
  Country: US (occurrence: US)
  Receive Date: 20130703
  Receipt Date: 20130722
  Transmission Date: 20140515
  Serious: Yes (Death)
  Sender: FDA-Public Use
  Company Number: US-ENDO PHARMACEUTICALS INC.-SPLN20130061

PATIENT
  Age: 8 Year
  Sex: Female
  Weight: 29.3 kg

DRUGS (1)
  1. SUPPRELIN LA [Suspect]
     Indication: PRECOCIOUS PUBERTY
     Route: 058

REACTIONS (2)
  - Astrocytoma, low grade [Fatal]
  - Condition aggravated [Fatal]
